FAERS Safety Report 11070164 (Version 3)
Quarter: 2015Q2

REPORT INFORMATION
  Report Type: Spontaneous
  Country: US (occurrence: US)
  Receive Date: 20150427
  Receipt Date: 20150630
  Transmission Date: 20150821
  Serious: Yes (Other)
  Sender: FDA-Public Use
  Company Number: US-B.I. PHARMACEUTICALS,INC./RIDGEFIELD-2015-BI-21108BP

PATIENT
  Age: 60 Year
  Sex: Female
  Weight: 75.75 kg

DRUGS (1)
  1. SPIRIVA [Suspect]
     Active Substance: TIOTROPIUM BROMIDE MONOHYDRATE
     Indication: CHRONIC OBSTRUCTIVE PULMONARY DISEASE
     Dosage: 18 MCG
     Route: 055
     Dates: start: 201409

REACTIONS (6)
  - Candida infection [Recovered/Resolved]
  - Sleep apnoea syndrome [Unknown]
  - Pharyngitis streptococcal [Recovered/Resolved]
  - Pharyngitis streptococcal [Recovered/Resolved]
  - Pharyngitis [Unknown]
  - Bronchitis [Recovered/Resolved]

NARRATIVE: CASE EVENT DATE: 201411
